FAERS Safety Report 21643841 (Version 3)
Quarter: 2022Q4

REPORT INFORMATION
  Report Type: Spontaneous
  Country: JP (occurrence: JP)
  Receive Date: 20221125
  Receipt Date: 20221221
  Transmission Date: 20230113
  Serious: Yes (Other)
  Sender: FDA-Public Use
  Company Number: JP-NEUROCRINE BIOSCIENCES INC.-2022NBI08638

PATIENT

DRUGS (2)
  1. ONGENTYS [Suspect]
     Active Substance: OPICAPONE
     Indication: Parkinson^s disease
     Dosage: UNK, UNKNOWN
     Route: 048
  2. ONGENTYS [Suspect]
     Active Substance: OPICAPONE
     Dosage: UNK, UNKNOWN
     Route: 048

REACTIONS (2)
  - Dementia [Unknown]
  - Dysphagia [Unknown]
